FAERS Safety Report 9892840 (Version 1)
Quarter: 2014Q1

REPORT INFORMATION
  Report Type: Spontaneous
  Country: GB (occurrence: GB)
  Receive Date: 20140213
  Receipt Date: 20140213
  Transmission Date: 20141002
  Serious: Yes (Hospitalization)
  Sender: FDA-Public Use
  Company Number: GB-ROCHE-1345774

PATIENT
  Age: 58 Year
  Sex: Female

DRUGS (8)
  1. HERCEPTIN [Suspect]
     Indication: BREAST CANCER METASTATIC
     Route: 042
     Dates: start: 20121209
  2. HERCEPTIN [Suspect]
     Route: 058
     Dates: end: 20131208
  3. CODEINE [Concomitant]
  4. CYCLIZINE [Concomitant]
  5. MIRTAZAPINE [Concomitant]
  6. PARACETAMOL [Concomitant]
  7. RAMIPRIL [Concomitant]
  8. ZOLEDRONIC ACID [Concomitant]

REACTIONS (4)
  - Pyrexia [Recovering/Resolving]
  - Influenza like illness [Recovering/Resolving]
  - Migraine [Recovering/Resolving]
  - Chills [Recovering/Resolving]
